FAERS Safety Report 24196631 (Version 1)
Quarter: 2024Q3

REPORT INFORMATION
  Report Type: Other
  Country: JP (occurrence: None)
  Receive Date: 20240810
  Receipt Date: 20240810
  Transmission Date: 20241017
  Serious: Yes (Other)
  Sender: SQUARE PHARMACEUTICALS
  Company Number: JP-Square Pharmaceuticals PLC-000044

PATIENT
  Age: 36 Year
  Sex: Female
  Weight: 66.8 kg

DRUGS (8)
  1. ACYCLOVIR [Suspect]
     Active Substance: ACYCLOVIR
     Indication: Varicella zoster virus infection
     Dosage: 1500 MG/DAY
  2. METHYLPREDNISOLONE [Concomitant]
     Active Substance: METHYLPREDNISOLONE
     Indication: Varicella zoster virus infection
     Dosage: 1000 MG FOR THREE DAYS
  3. PREDNISONE [Concomitant]
     Active Substance: PREDNISONE
     Indication: Varicella zoster virus infection
     Dosage: 50 MG/DAY FOR 5 DAYS
     Route: 048
  4. APIXABAN [Concomitant]
     Active Substance: APIXABAN
     Indication: Antiplatelet therapy
     Dosage: 10 MG/DAY
  5. CLOPIDOGREL [Concomitant]
     Active Substance: CLOPIDOGREL BISULFATE
     Indication: Antiplatelet therapy
     Dosage: 75 MG/DAY
  6. ACYCLOVIR [Suspect]
     Active Substance: ACYCLOVIR
     Indication: Angiopathy
     Dosage: 1500 MG/DAY
  7. METHYLPREDNISOLONE [Concomitant]
     Active Substance: METHYLPREDNISOLONE
     Indication: Angiopathy
     Dosage: 1000 MG FOR THREE DAYS
  8. PREDNISONE [Concomitant]
     Active Substance: PREDNISONE
     Indication: Angiopathy
     Dosage: 50 MG/DAY FOR 5 DAYS
     Route: 048

REACTIONS (1)
  - Neutropenia [Recovered/Resolved]
